FAERS Safety Report 13949969 (Version 1)
Quarter: 2017Q3

REPORT INFORMATION
  Report Type: Spontaneous
  Country: US (occurrence: US)
  Receive Date: 20170908
  Receipt Date: 20170908
  Transmission Date: 20171128
  Serious: Yes (Other)
  Sender: FDA-Public Use
  Company Number: US-ASTRAZENECA-2014SE46548

PATIENT
  Age: 70 Year
  Sex: Female
  Weight: 83 kg

DRUGS (4)
  1. PROPRANOLOL [Concomitant]
     Active Substance: PROPRANOLOL HYDROCHLORIDE
     Indication: MIGRAINE
     Dosage: 60.0MG UNKNOWN
     Dates: start: 2005
  2. ANASTROZOLE. [Suspect]
     Active Substance: ANASTROZOLE
     Indication: BREAST CANCER FEMALE
     Dosage: 1.0MG UNKNOWN
     Route: 048
     Dates: start: 201108
  3. TOPIRAMATE. [Concomitant]
     Active Substance: TOPIRAMATE
     Indication: MIGRAINE
     Dosage: 50.0MG UNKNOWN
     Dates: start: 2005
  4. ZOMIG [Suspect]
     Active Substance: ZOLMITRIPTAN
     Indication: MIGRAINE
     Dosage: 5.0MG AS REQUIRED
     Route: 045
     Dates: start: 2008

REACTIONS (4)
  - Breast cancer female [Recovered/Resolved]
  - Underdose [Unknown]
  - Migraine [Recovered/Resolved]
  - Device malfunction [Unknown]

NARRATIVE: CASE EVENT DATE: 2011
